FAERS Safety Report 4978269-4 (Version None)
Quarter: 2006Q2

REPORT INFORMATION
  Report Type: 
  Country: None (occurrence: None)
  Receive Date: 20060417
  Receipt Date: 20060407
  Transmission Date: 20061013
  Serious: Yes (Other)
  Sender: FDA-Public Use
  Company Number: USA-2003-0004089

PATIENT
  Age: 33 Year
  Sex: Female
  Weight: 87.5 kg

DRUGS (14)
  1. OXYCONTIN [Suspect]
     Indication: PAIN
     Dosage: SEE IMAGE
     Route: 048
     Dates: start: 19990909
  2. OXYCONTIN [Suspect]
     Indication: PAIN
     Dosage: SEE IMAGE
     Route: 048
     Dates: start: 19991111
  3. OXYCONTIN [Suspect]
     Indication: PAIN
     Dosage: SEE IMAGE
     Route: 048
     Dates: start: 20000313
  4. OXYCONTIN [Suspect]
     Indication: PAIN
     Dosage: SEE IMAGE
     Route: 048
     Dates: start: 20001113
  5. OXYCODONE HCL [Suspect]
     Dosage: 1 TABLET, Q4H PRN
     Dates: start: 19991214, end: 20001113
  6. HYDROCHLOROTHIAZIDE [Concomitant]
  7. AZITHROMYCIN [Concomitant]
  8. ZOLOFT [Concomitant]
  9. VIOXX [Concomitant]
  10. FASTIN [Concomitant]
  11. LORCET-HD [Concomitant]
  12. MERIDIA [Concomitant]
  13. ZONEGRAN [Concomitant]
  14. LASIX [Concomitant]

REACTIONS (29)
  - ABDOMINAL PAIN LOWER [None]
  - ANGER [None]
  - ANXIETY [None]
  - ARTHRALGIA [None]
  - ASTHENIA [None]
  - BACK PAIN [None]
  - BEREAVEMENT REACTION [None]
  - BLOOD PRESSURE INCREASED [None]
  - CHILD NEGLECT [None]
  - CRYING [None]
  - DEPRESSION [None]
  - DISTURBANCE IN ATTENTION [None]
  - DRUG ABUSER [None]
  - DRUG DEPENDENCE [None]
  - DRUG WITHDRAWAL SYNDROME [None]
  - DYSFUNCTIONAL UTERINE BLEEDING [None]
  - FLAT AFFECT [None]
  - LIMB INJURY [None]
  - MUSCLE SPASMS [None]
  - OEDEMA [None]
  - PAIN IN EXTREMITY [None]
  - PANIC ATTACK [None]
  - SHOULDER PAIN [None]
  - SUICIDAL IDEATION [None]
  - SWELLING [None]
  - VAGINAL DISCHARGE [None]
  - VAGINAL HAEMORRHAGE [None]
  - VAGINAL ODOUR [None]
  - WEIGHT DECREASED [None]
